FAERS Safety Report 5035058-2 (Version None)
Quarter: 2006Q2

REPORT INFORMATION
  Report Type: 
  Country: None (occurrence: None)
  Receive Date: 20060622
  Receipt Date: 20060609
  Transmission Date: 20061013
  Serious: Yes (Hospitalization, Other)
  Sender: FDA-Public Use
  Company Number: HQWYE058909JUN06

PATIENT
  Age: 40 Year
  Sex: Male

DRUGS (5)
  1. AVLOCARDYL (PROPRANOLOL HYDROCHLORIDE, TABLET, 40 MG) [Suspect]
     Dosage: 25 TABLET 1X PER 1 DAY
     Route: 048
     Dates: start: 20060419
  2. AVLOCARDYL LP (PROPRANOLOL HYDROCHLORIDE, CAPSULE, EXTENDED RELEASE) [Suspect]
     Dosage: 14 CAPSULE 1X PER 1 DAY
     Route: 048
     Dates: start: 20060419
  3. LORAZEPAM [Suspect]
     Dosage: 20 TABLET 1X PER 1 DAY
     Route: 048
  4. THERALEN (ALIMEMAZINE TARTRATE, ) [Suspect]
     Route: 048
     Dates: start: 20060419
  5. XANAX [Suspect]
     Dosage: X 30 - 0.25 MG TABLETS
     Route: 048
     Dates: start: 20060419

REACTIONS (5)
  - BLOOD PRESSURE DECREASED [None]
  - CIRCULATORY COLLAPSE [None]
  - COMA [None]
  - INTENTIONAL OVERDOSE [None]
  - SOMNOLENCE [None]
